FAERS Safety Report 9157314 (Version 2)
Quarter: 2013Q2

REPORT INFORMATION
  Report Type: Spontaneous
  Country: CN (occurrence: CN)
  Receive Date: 20130312
  Receipt Date: 20130502
  Transmission Date: 20140414
  Serious: No
  Sender: FDA-Public Use
  Company Number: CN-JNJFOC-20130300496

PATIENT
  Age: 69 Year
  Sex: Male

DRUGS (3)
  1. DUROGESIC D-TRANS [Suspect]
     Indication: ARTHRALGIA
     Dosage: 50 UG/HR*5
     Route: 062
     Dates: start: 20130227
  2. DUROGESIC D-TRANS [Suspect]
     Indication: CANCER PAIN
     Dosage: 50 UG/HR*5
     Route: 062
     Dates: start: 20130227
  3. MORPHINE [Concomitant]
     Indication: PRODUCT USED FOR UNKNOWN INDICATION
     Route: 065

REACTIONS (4)
  - Incorrect dose administered [Unknown]
  - Vomiting [Recovered/Resolved]
  - Inappropriate schedule of drug administration [Unknown]
  - Drug ineffective [Not Recovered/Not Resolved]
